FAERS Safety Report 19808312 (Version 8)
Quarter: 2022Q1

REPORT INFORMATION
  Report Type: Report from Study
  Country: MX (occurrence: MX)
  Receive Date: 20210908
  Receipt Date: 20220107
  Transmission Date: 20220423
  Serious: Yes (Hospitalization, Other)
  Sender: FDA-Public Use
  Company Number: MX-TAKEDA-MX202034386

PATIENT
  Age: 7 Year
  Sex: Male
  Weight: 30 kg

DRUGS (3)
  1. IDURSULFASE [Suspect]
     Active Substance: IDURSULFASE
     Indication: Mucopolysaccharidosis II
     Dosage: 2 VIAL, 1/WEEK
     Route: 042
     Dates: start: 20201007
  2. IDURSULFASE [Suspect]
     Active Substance: IDURSULFASE
     Dosage: 12 MILLIGRAM, 1/WEEK
     Route: 042
  3. LEVETIRACETAM [Concomitant]
     Active Substance: LEVETIRACETAM
     Indication: Seizure
     Route: 065

REACTIONS (17)
  - Pyrexia [Recovered/Resolved]
  - Hypertensive crisis [Recovered/Resolved]
  - Complication associated with device [Recovered/Resolved]
  - Catheter removal [Recovered/Resolved]
  - Catheter placement [Recovered/Resolved]
  - Influenza [Recovering/Resolving]
  - Somnolence [Recovered/Resolved]
  - Tremor [Recovered/Resolved]
  - Unevaluable event [Recovered/Resolved]
  - Productive cough [Recovered/Resolved]
  - Oropharyngeal discomfort [Recovered/Resolved]
  - Therapy interrupted [Unknown]
  - Nightmare [Recovering/Resolving]
  - Diarrhoea [Recovered/Resolved]
  - Product availability issue [Recovering/Resolving]
  - Product dose omission issue [Unknown]
  - Infusion related reaction [Unknown]

NARRATIVE: CASE EVENT DATE: 20201014
